FAERS Safety Report 6633074-8 (Version None)
Quarter: 2010Q1

REPORT INFORMATION
  Report Type: 
  Country: None (occurrence: None)
  Receive Date: 20100312
  Receipt Date: 20100301
  Transmission Date: 20100710
  Serious: Yes (Other)
  Sender: FDA-Public Use
  Company Number: PHEH2008US09306

PATIENT
  Sex: Female

DRUGS (15)
  1. AREDIA [Suspect]
     Dosage: UNK
  2. ZOMETA [Suspect]
     Dosage: EVERY 4 WEEKS
     Dates: end: 20060701
  3. MIACALCIN [Concomitant]
  4. SYNTHROID [Concomitant]
     Dosage: 125 MCG, DAILY
  5. VITAMIN D [Concomitant]
     Dosage: 50000 IU, BID
  6. NEURONTIN [Concomitant]
     Dosage: 400 MG, QID
  7. DEXAMETHASONE [Concomitant]
     Dosage: 4 MG, 10 TABS WEEKLY
  8. REVLIMID [Concomitant]
     Dosage: 25 MG, DAILY
  9. BACTRIM [Concomitant]
     Dosage: 800MG-160MG, BID
  10. MELOXICAM [Concomitant]
     Dosage: 7.5 MG, DAILY
  11. CORTEF                                  /CAN/ [Concomitant]
     Dosage: 10 MG, BID
  12. ZITHROMAX [Concomitant]
     Dosage: 500 MG, DAILY
  13. DECADRON [Concomitant]
     Dosage: 4 MG, QID
  14. POTASSIUM [Concomitant]
     Dosage: 40 MEQ, UNK
  15. INFLUENZA VACCINE [Concomitant]

REACTIONS (42)
  - ANAEMIA [None]
  - ANHEDONIA [None]
  - ANXIETY [None]
  - ARTHRALGIA [None]
  - ASTHENIA [None]
  - BONE DISORDER [None]
  - BONE FRAGMENTATION [None]
  - COSTOCHONDRITIS [None]
  - DIARRHOEA [None]
  - DISABILITY [None]
  - EDENTULOUS [None]
  - ENDODONTIC PROCEDURE [None]
  - FATIGUE [None]
  - GINGIVAL INFECTION [None]
  - HYPERHIDROSIS [None]
  - HYPOKALAEMIA [None]
  - INJURY [None]
  - JOINT INJECTION [None]
  - MUSCLE SPASMS [None]
  - MUSCULOSKELETAL DISCOMFORT [None]
  - OEDEMA MOUTH [None]
  - OEDEMA PERIPHERAL [None]
  - OSTEONECROSIS [None]
  - OSTEOPENIA [None]
  - PAIN [None]
  - PAIN IN EXTREMITY [None]
  - PAIN IN JAW [None]
  - PALLOR [None]
  - PATHOLOGICAL FRACTURE [None]
  - PERIODONTAL DISEASE [None]
  - POLYDIPSIA [None]
  - POLYURIA [None]
  - SACROILIITIS [None]
  - SPINAL OSTEOARTHRITIS [None]
  - STRESS URINARY INCONTINENCE [None]
  - SYNOVIAL CYST [None]
  - TOOTH FRACTURE [None]
  - TOOTH LOSS [None]
  - TOOTHACHE [None]
  - TREMOR [None]
  - VITAMIN D DEFICIENCY [None]
  - WEIGHT INCREASED [None]
